FAERS Safety Report 8378516 (Version 3)
Quarter: 2012Q4

REPORT INFORMATION
  Report Type: 
  Country: JP (occurrence: JP)
  Receive Date: 20120131
  Receipt Date: 20120918
  Transmission Date: 20130627
  Serious: Yes (Other)
  Sender: FDA-Public Use
  Company Number: JP-PFIZER INC-2012021120

PATIENT
  Age: 54 Year
  Sex: Female

DRUGS (1)
  1. SOLU-CORTEF [Suspect]

REACTIONS (3)
  - Urinary retention [Unknown]
  - Cushingoid [Unknown]
  - Oedema [Unknown]
